FAERS Safety Report 18953139 (Version 1)
Quarter: 2021Q1

REPORT INFORMATION
  Report Type: Spontaneous
  Country: US (occurrence: US)
  Receive Date: 20210227
  Receipt Date: 20210227
  Transmission Date: 20210420
  Serious: No
  Sender: FDA-Public Use
  Company Number: None

PATIENT
  Age: 39 Year
  Sex: Male
  Weight: 81.45 kg

DRUGS (7)
  1. ACID REDUCER [Concomitant]
     Active Substance: ESOMEPRAZOLE MAGNESIUM
  2. MANY AMEN CLINIC SUPPLEMENTS [Concomitant]
  3. SEROTONIN [Concomitant]
     Active Substance: SEROTONIN
  4. MELATONIN [Concomitant]
     Active Substance: MELATONIN
  5. FOCUS AND ENERGY PILLS [Concomitant]
  6. CLARITIN [Concomitant]
     Active Substance: LORATADINE
  7. HYDROCODONE/ACETAMINOPHEN 5?325 TB [Suspect]
     Active Substance: ACETAMINOPHEN\HYDROCODONE BITARTRATE
     Indication: PAIN
     Dosage: ?          QUANTITY:20 TABLET(S);?
     Route: 048
     Dates: start: 20210128, end: 20210203

REACTIONS (2)
  - Drug hypersensitivity [None]
  - Inadequate analgesia [None]

NARRATIVE: CASE EVENT DATE: 20210128
